FAERS Safety Report 25190039 (Version 2)
Quarter: 2025Q2

REPORT INFORMATION
  Report Type: Report from Study
  Country: US (occurrence: US)
  Receive Date: 20250411
  Receipt Date: 20250422
  Transmission Date: 20250716
  Serious: Yes (Hospitalization)
  Sender: EISAI
  Company Number: US-Eisai-EC-2025-185451

PATIENT
  Age: 65 Year
  Sex: Female
  Weight: 84 kg

DRUGS (30)
  1. LENVIMA [Suspect]
     Active Substance: LENVATINIB
     Indication: Endometrial cancer
     Dates: start: 202501, end: 2025
  2. ATORVASTATIN [Concomitant]
     Active Substance: ATORVASTATIN
  3. CARBOPLATIN [Concomitant]
     Active Substance: CARBOPLATIN
  4. CETIRIZINE [Concomitant]
     Active Substance: CETIRIZINE HYDROCHLORIDE
  5. COZAAR [Concomitant]
     Active Substance: LOSARTAN POTASSIUM
  6. DEXAMETHASONE [Concomitant]
     Active Substance: DEXAMETHASONE
  7. DRONABINOL [Concomitant]
     Active Substance: DRONABINOL
  8. POTASSIUM [Concomitant]
     Active Substance: POTASSIUM
  9. ZOFRAN [Concomitant]
     Active Substance: ONDANSETRON HYDROCHLORIDE
  10. ERGOCALCIFEROL [Concomitant]
     Active Substance: ERGOCALCIFEROL
  11. VITAMIN D3 [Concomitant]
     Active Substance: CHOLECALCIFEROL
  12. TRAMADOL [Concomitant]
     Active Substance: TRAMADOL
  13. PROCHLORPERAZINE [Concomitant]
     Active Substance: PROCHLORPERAZINE
  14. PACLITAXEL [Concomitant]
     Active Substance: PACLITAXEL
  15. ONDANSETRON [Concomitant]
     Active Substance: ONDANSETRON
  16. OMEPRAZOLE [Concomitant]
     Active Substance: OMEPRAZOLE
  17. NYSTATIN [Concomitant]
     Active Substance: NYSTATIN
  18. NORCO [Concomitant]
     Active Substance: ACETAMINOPHEN\HYDROCODONE BITARTRATE
  19. METFORMIN [Concomitant]
     Active Substance: METFORMIN HYDROCHLORIDE
  20. MAGNESIUM GLUCONATE [Concomitant]
     Active Substance: MAGNESIUM GLUCONATE
  21. LORAZEPAM [Concomitant]
     Active Substance: LORAZEPAM
  22. LIDOCAINE\PRILOCAINE [Concomitant]
     Active Substance: LIDOCAINE\PRILOCAINE
  23. LEVOTHYROXINE [Concomitant]
     Active Substance: LEVOTHYROXINE
  24. KEYTRUDA [Concomitant]
     Active Substance: PEMBROLIZUMAB
  25. IMODIUM [Concomitant]
     Active Substance: LOPERAMIDE HYDROCHLORIDE
  26. HYDROCODONE [Concomitant]
     Active Substance: HYDROCODONE
  27. GAS-X [Concomitant]
     Active Substance: DIMETHICONE
  28. FOSAPREPITANT [Concomitant]
     Active Substance: FOSAPREPITANT
  29. FAMOTIDINE [Concomitant]
     Active Substance: FAMOTIDINE
  30. EUTHYROX [Concomitant]
     Active Substance: LEVOTHYROXINE SODIUM

REACTIONS (7)
  - Urinary tract infection [Recovered/Resolved]
  - Abdominal pain [Not Recovered/Not Resolved]
  - Malaise [Not Recovered/Not Resolved]
  - Gastritis [Not Recovered/Not Resolved]
  - Eructation [Not Recovered/Not Resolved]
  - Abdominal distension [Not Recovered/Not Resolved]
  - Fatigue [Not Recovered/Not Resolved]

NARRATIVE: CASE EVENT DATE: 20250101
